FAERS Safety Report 7103295-9 (Version None)
Quarter: 2010Q4

REPORT INFORMATION
  Report Type: 
  Country: None (occurrence: None)
  Receive Date: 20101115
  Receipt Date: 20101112
  Transmission Date: 20110411
  Serious: Yes (Other)
  Sender: FDA-Public Use
  Company Number: US-BRISTOL-MYERS SQUIBB COMPANY-15383870

PATIENT
  Age: 63 Year
  Sex: Male

DRUGS (2)
  1. ABILIFY [Suspect]
     Dosage: INTERRUPTED AND RESTARTED ON 12NOV10
  2. WELLBUTRIN [Concomitant]

REACTIONS (1)
  - HEPATIC STEATOSIS [None]
